FAERS Safety Report 9831543 (Version 1)
Quarter: 2014Q1

REPORT INFORMATION
  Report Type: Spontaneous
  Country: US (occurrence: US)
  Receive Date: 20140121
  Receipt Date: 20140121
  Transmission Date: 20141002
  Serious: Yes (Hospitalization)
  Sender: FDA-Public Use
  Company Number: US-BAYER-2014-009692

PATIENT
  Age: 17 Year
  Sex: Female

DRUGS (9)
  1. YASMIN [Suspect]
  2. LORAZEPAM [Concomitant]
  3. LORTAB [Concomitant]
     Indication: PAIN
     Dosage: 250/10 ONE TO 2 TABS BY MOUTH EVERY 4-6 HOURS PRN
  4. MOTRIN [Concomitant]
  5. MORPHINE [Concomitant]
  6. OXYCONTIN [Concomitant]
     Indication: BREAKTHROUGH PAIN
     Route: 048
  7. CIPRODEX [Concomitant]
     Dosage: 3 DROPS TO LEFT EAR BID TO COMPLETE A 10 DAY COURSE
  8. AUGMENTIN [Concomitant]
     Dosage: 875/125 ONE TABLET TWICE DAILY
     Route: 048
  9. CLINDAMYCIN [Concomitant]
     Dosage: 300 TID
     Route: 048

REACTIONS (3)
  - Jugular vein thrombosis [Recovering/Resolving]
  - Intracranial venous sinus thrombosis [Recovered/Resolved]
  - Transverse sinus thrombosis [Recovered/Resolved]
